FAERS Safety Report 5384438-4 (Version None)
Quarter: 2007Q3

REPORT INFORMATION
  Report Type: 
  Country: None (occurrence: None)
  Receive Date: 20070711
  Receipt Date: 20070702
  Transmission Date: 20080115
  Serious: Yes (Hospitalization)
  Sender: FDA-Public Use
  Company Number: US-ASTRAZENECA-2006UW04988

PATIENT
  Age: 47 Year
  Sex: Female
  Weight: 76.4 kg

DRUGS (5)
  1. SEROQUEL [Suspect]
     Indication: SCHIZOAFFECTIVE DISORDER
     Dosage: 25 MG TO 100 MG
     Route: 048
     Dates: start: 20011201, end: 20030301
  2. SEROQUEL [Suspect]
     Indication: BIPOLAR DISORDER
     Dosage: 25 MG TO 100 MG
     Route: 048
     Dates: start: 20011201, end: 20030301
  3. ZYPREXA [Suspect]
  4. ABILIFY [Concomitant]
     Dates: start: 20020101, end: 20030101
  5. RISPERDAL [Concomitant]
     Dates: start: 20010101

REACTIONS (5)
  - BLOOD CHOLESTEROL INCREASED [None]
  - BLOOD TRIGLYCERIDES INCREASED [None]
  - DIABETES MELLITUS [None]
  - INTESTINAL POLYP [None]
  - RENAL DISORDER [None]
